FAERS Safety Report 8404085-7 (Version None)
Quarter: 2012Q2

REPORT INFORMATION
  Report Type: 
  Country: None (occurrence: None)
  Receive Date: 20120601
  Receipt Date: 20120529
  Transmission Date: 20120825
  Serious: Yes (Other)
  Sender: FDA-Public Use
  Company Number: PHEH2012US010597

PATIENT
  Sex: Female

DRUGS (2)
  1. VANCOMYCIN [Concomitant]
     Dosage: 250 MG/5 ML
  2. DIOVAN [Suspect]
     Dosage: UNK UKN, UNK

REACTIONS (1)
  - CLOSTRIDIUM DIFFICILE COLITIS [None]
